FAERS Safety Report 8488749-5 (Version None)
Quarter: 2012Q3

REPORT INFORMATION
  Report Type: 
  Country: None (occurrence: None)
  Receive Date: 20120705
  Receipt Date: 20120702
  Transmission Date: 20120928
  Serious: Yes (Other)
  Sender: FDA-Public Use
  Company Number: AR-ROCHE-1084041

PATIENT
  Sex: Male

DRUGS (1)
  1. LUCENTIS [Suspect]
     Indication: VISUAL ACUITY REDUCED
     Dates: start: 20111001

REACTIONS (3)
  - RETINAL DETACHMENT [None]
  - CATARACT [None]
  - EYE HAEMORRHAGE [None]
